FAERS Safety Report 7052760-1 (Version None)
Quarter: 2010Q4

REPORT INFORMATION
  Report Type: 
  Country: None (occurrence: None)
  Receive Date: 20101012
  Receipt Date: 20101004
  Transmission Date: 20110411
  Serious: Yes (Other)
  Sender: FDA-Public Use
  Company Number: 2010SP052947

PATIENT
  Age: 49 Year
  Sex: Female

DRUGS (3)
  1. NASONEX [Suspect]
     Indication: MULTIPLE ALLERGIES
     Dosage: 4 DF;QD;NAS
     Route: 045
     Dates: start: 20100624, end: 20100701
  2. VALIUM [Concomitant]
  3. ALBUTEROL INHALER [Concomitant]

REACTIONS (2)
  - HERPES ZOSTER [None]
  - POST HERPETIC NEURALGIA [None]
